FAERS Safety Report 8272387-3 (Version None)
Quarter: 2012Q2

REPORT INFORMATION
  Report Type: 
  Country: None (occurrence: None)
  Receive Date: 20120410
  Receipt Date: 20120308
  Transmission Date: 20120825
  Serious: Yes (Hospitalization)
  Sender: FDA-Public Use
  Company Number: CHPA2012US006317

PATIENT
  Age: 44 Year
  Sex: Female

DRUGS (3)
  1. GAS-X PREVENTION [Suspect]
     Indication: FLATULENCE
     Dosage: 1 DF, PRN
     Route: 048
     Dates: end: 20110204
  2. MAGNESIUM [Concomitant]
     Dosage: UNK, UNK
  3. VITAMIN B COMPLEX CAP [Concomitant]
     Dosage: UNK, UNK

REACTIONS (13)
  - PALPITATIONS [None]
  - PARAESTHESIA [None]
  - SENSATION OF PRESSURE [None]
  - TREMOR [None]
  - HEART RATE IRREGULAR [None]
  - DIZZINESS [None]
  - INSOMNIA [None]
  - BACK PAIN [None]
  - FATIGUE [None]
  - NAUSEA [None]
  - ASTHENIA [None]
  - HYPOAESTHESIA [None]
  - CHEST PAIN [None]
